FAERS Safety Report 23134395 (Version 2)
Quarter: 2024Q1

REPORT INFORMATION
  Report Type: Spontaneous
  Country: FR (occurrence: FR)
  Receive Date: 20231101
  Receipt Date: 20240207
  Transmission Date: 20240410
  Serious: Yes (Death, Other)
  Sender: FDA-Public Use
  Company Number: None

PATIENT

DRUGS (10)
  1. DIAZEPAM [Suspect]
     Active Substance: DIAZEPAM
     Indication: Maternal use of illicit drugs
     Dosage: 40 MG, QD
     Route: 064
     Dates: start: 20220106, end: 20220518
  2. VALPROIC ACID [Suspect]
     Active Substance: VALPROIC ACID
     Indication: Maternal drugs affecting foetus
     Dosage: 900 MG, QD (300X3/DAY)
     Route: 064
     Dates: start: 20220106, end: 20220202
  3. LEVOMEPROMAZINE [Suspect]
     Active Substance: LEVOMEPROMAZINE
     Indication: Maternal drugs affecting foetus
     Dosage: 450 MG, QD
     Route: 064
     Dates: start: 20220106, end: 20220518
  4. LOVENOX [Suspect]
     Active Substance: ENOXAPARIN SODIUM
     Indication: Maternal drugs affecting foetus
     Dosage: 1 DF, QD
     Route: 064
     Dates: start: 20220106, end: 20220518
  5. CHLORPROMAZINE [Suspect]
     Active Substance: CHLORPROMAZINE
     Indication: Maternal use of illicit drugs
     Dosage: 100 MG, QD (IF NECESSARY)
     Route: 064
     Dates: start: 20220106, end: 20220518
  6. OLANZAPINE [Suspect]
     Active Substance: OLANZAPINE
     Indication: Maternal drugs affecting foetus
     Dosage: 30 MG, QD
     Route: 064
     Dates: start: 20220106, end: 20220518
  7. HALOPERIDOL [Suspect]
     Active Substance: HALOPERIDOL
     Indication: Maternal drugs affecting foetus
     Dosage: 20 MG, QD
     Route: 064
     Dates: start: 20220106, end: 20220518
  8. CANNABIS SATIVA SUBSP. INDICA TOP [Suspect]
     Active Substance: CANNABIS SATIVA SUBSP. INDICA TOP
     Indication: Maternal use of illicit drugs
     Dosage: UNK
     Route: 064
  9. COCAINE [Suspect]
     Active Substance: COCAINE
     Indication: Maternal use of illicit drugs
     Dosage: UNK
     Route: 064
  10. TRIMEPRAZINE [Suspect]
     Active Substance: TRIMEPRAZINE
     Indication: Maternal drugs affecting foetus
     Dosage: 20 GTT DROPS, QD
     Route: 064
     Dates: start: 20220106, end: 20220518

REACTIONS (4)
  - Gastrointestinal necrosis [Fatal]
  - Abdominal hernia [Fatal]
  - Premature baby [Fatal]
  - Foetal exposure during pregnancy [Fatal]

NARRATIVE: CASE EVENT DATE: 20220518
